FAERS Safety Report 9767451 (Version 3)
Quarter: 2014Q1

REPORT INFORMATION
  Report Type: Report from Study
  Country: US (occurrence: US)
  Receive Date: 20131217
  Receipt Date: 20140303
  Transmission Date: 20141002
  Serious: Yes (Other)
  Sender: FDA-Public Use
  Company Number: PHEH2013US020596

PATIENT
  Age: 44 Year
  Sex: Female

DRUGS (1)
  1. GILENYA [Suspect]
     Indication: MULTIPLE SCLEROSIS
     Dosage: 0.5 MG, QD
     Route: 048
     Dates: start: 20130226

REACTIONS (2)
  - Abortion spontaneous [Unknown]
  - Maternal exposure during pregnancy [Unknown]
